FAERS Safety Report 22223420 (Version 1)
Quarter: 2023Q2

REPORT INFORMATION
  Report Type: Report from Study
  Country: CA (occurrence: CA)
  Receive Date: 20230418
  Receipt Date: 20230418
  Transmission Date: 20230721
  Serious: Yes (Hospitalization, Other)
  Sender: FDA-Public Use
  Company Number: CA-JNJFOC-20221057563

PATIENT
  Age: 18 Year
  Sex: Male
  Weight: 57 kg

DRUGS (1)
  1. REMICADE [Suspect]
     Active Substance: INFLIXIMAB
     Indication: Crohn^s disease
     Dosage: ON 11-APR-2023, THE PATIENT TOOK 121 TH INFUSION
     Route: 042
     Dates: start: 20111122

REACTIONS (5)
  - Stoma creation [Unknown]
  - Colectomy total [Recovered/Resolved]
  - Abdominal pain [Recovering/Resolving]
  - Stoma site rash [Unknown]
  - Malaise [Unknown]

NARRATIVE: CASE EVENT DATE: 20221005
